FAERS Safety Report 5229811-X (Version None)
Quarter: 2007Q1

REPORT INFORMATION
  Report Type: 
  Country: None (occurrence: None)
  Receive Date: 20070206
  Receipt Date: 20060711
  Transmission Date: 20070707
  Serious: No
  Sender: FDA-Public Use
  Company Number: US-GLAXOSMITHKLINE-A0517589A

PATIENT
  Sex: Female

DRUGS (9)
  1. PAXIL [Suspect]
     Indication: ANXIETY
     Route: 048
     Dates: start: 20000101, end: 20020101
  2. PAXIL CR [Suspect]
     Indication: ANXIETY
     Route: 048
  3. PAROXETINE HYDROCHLORIDE [Suspect]
     Indication: ANXIETY
     Dosage: 30MG UNKNOWN
     Route: 048
  4. DETROL [Concomitant]
  5. B12 [Concomitant]
  6. DILANTIN [Concomitant]
     Dates: start: 20031001
  7. COPAXONE [Concomitant]
  8. ORAL CONTRACEPTIVE [Concomitant]
  9. LAMICTAL [Concomitant]

REACTIONS (5)
  - ADVERSE EVENT [None]
  - DISABILITY [None]
  - DRUG WITHDRAWAL SYNDROME [None]
  - PARAESTHESIA [None]
  - PERFORMANCE STATUS DECREASED [None]
